FAERS Safety Report 4564577-8 (Version None)
Quarter: 2005Q1

REPORT INFORMATION
  Report Type: 
  Country: None (occurrence: None)
  Receive Date: 20050126
  Receipt Date: 20050107
  Transmission Date: 20050727
  Serious: Yes (Hospitalization)
  Sender: FDA-Public Use
  Company Number: E127661

PATIENT
  Age: 69 Year
  Sex: Male

DRUGS (5)
  1. (OXALIPLATIN) - SOLUTION - 150 MG [Suspect]
     Indication: COLORECTAL CANCER METASTATIC
     Dosage: 150 MG Q2W INTRAVENOUS NOS
     Route: 042
     Dates: start: 20010305, end: 20010305
  2. FLUOROURACIL [Suspect]
     Dosage: TOTAL DOSE 1750 MG (400MG/M2 BOL + 600MG/M2 22 HOURS INFUSION) ON D1, D2; Q2W INTRAVENOUS NOS
     Route: 042
     Dates: start: 20010305, end: 20010306
  3. (LEUCOVORIN) - SOLUTION - 350 MG [Suspect]
     Dosage: 350 MG Q2W INTRAVENOUS NOS
     Route: 042
     Dates: start: 20010305, end: 20010306
  4. ZOCOR [Concomitant]
  5. OMEPRAZOLE [Concomitant]

REACTIONS (8)
  - ABDOMINAL PAIN UPPER [None]
  - BLOOD SODIUM DECREASED [None]
  - CLOSTRIDIUM COLITIS [None]
  - GASTRITIS [None]
  - NEUTROPENIC SEPSIS [None]
  - POLLAKIURIA [None]
  - RENAL FAILURE [None]
  - STAPHYLOCOCCAL SEPSIS [None]
